FAERS Safety Report 6030469-0 (Version None)
Quarter: 2009Q1

REPORT INFORMATION
  Report Type: 
  Country: None (occurrence: None)
  Receive Date: 20090106
  Receipt Date: 20090106
  Transmission Date: 20090719
  Serious: Yes (Other)
  Sender: FDA-Public Use
  Company Number: None

PATIENT
  Age: 51 Year
  Sex: Female
  Weight: 84.369 kg

DRUGS (6)
  1. ASPIRIN [Suspect]
     Indication: DRUG USE FOR UNKNOWN INDICATION
     Dosage: 81 MG, QD, ORAL 81 MG
     Route: 048
     Dates: start: 20040101
  2. ASPIRIN [Suspect]
     Indication: DRUG USE FOR UNKNOWN INDICATION
     Dosage: 81 MG, QD, ORAL 81 MG
     Route: 048
     Dates: start: 20080909
  3. BAYER ASPIRIN WITH HEART ADVANTAGE [Suspect]
     Indication: DRUG USE FOR UNKNOWN INDICATION
     Dosage: ORAL
     Route: 048
     Dates: start: 20080601, end: 20080909
  4. LIPITOR [Concomitant]
  5. EFFEXOR [Concomitant]
  6. PROTONIX [Concomitant]

REACTIONS (2)
  - BLOOD CHOLESTEROL INCREASED [None]
  - DIABETES MELLITUS [None]
